FAERS Safety Report 9883467 (Version 1)
Quarter: 2014Q1

REPORT INFORMATION
  Report Type: Spontaneous
  Country: US (occurrence: US)
  Receive Date: 20140210
  Receipt Date: 20140210
  Transmission Date: 20141002
  Serious: No
  Sender: FDA-Public Use
  Company Number: US-BIOGENIDEC-2014BI011705

PATIENT
  Sex: Female

DRUGS (2)
  1. TYSABRI [Suspect]
     Indication: MULTIPLE SCLEROSIS
     Route: 042
     Dates: start: 20130614, end: 20130830
  2. AVONEX [Concomitant]
     Indication: MULTIPLE SCLEROSIS
     Route: 030

REACTIONS (9)
  - Paraesthesia [Unknown]
  - Muscular weakness [Unknown]
  - Carpal tunnel syndrome [Unknown]
  - Depression [Unknown]
  - Neuropathy peripheral [Unknown]
  - Anxiety [Unknown]
  - Gait disturbance [Unknown]
  - Muscle spasms [Unknown]
  - Hypoaesthesia [Unknown]
